FAERS Safety Report 19815304 (Version 1)
Quarter: 2021Q3

REPORT INFORMATION
  Report Type: Spontaneous
  Country: US (occurrence: US)
  Receive Date: 20210910
  Receipt Date: 20210910
  Transmission Date: 20211014
  Serious: No
  Sender: FDA-Public Use
  Company Number: US-CELGENEUS-USA-20210900894

PATIENT
  Age: 49 Year
  Sex: Male
  Weight: 107.14 kg

DRUGS (2)
  1. ZEPOSIA [Suspect]
     Active Substance: OZANIMOD HYDROCHLORIDE
     Indication: MULTIPLE SCLEROSIS
     Dosage: .92MG
     Route: 048
     Dates: start: 20210527
  2. CORTICOTROPIN [Concomitant]
     Active Substance: CORTICOTROPIN
     Indication: HYPOAESTHESIA
     Dosage: UNKNOWN
     Route: 030
     Dates: start: 20210827

REACTIONS (2)
  - Initial insomnia [Recovering/Resolving]
  - Bone lesion [Recovering/Resolving]

NARRATIVE: CASE EVENT DATE: 20210527
